FAERS Safety Report 9184609 (Version 2)
Quarter: 2013Q2

REPORT INFORMATION
  Report Type: Report from Study
  Country: JP (occurrence: JP)
  Receive Date: 20130324
  Receipt Date: 20130401
  Transmission Date: 20140414
  Serious: Yes (Death, Hospitalization)
  Sender: FDA-Public Use
  Company Number: JP-ROCHE-1203133

PATIENT
  Age: 89 Year
  Sex: Male
  Weight: 58 kg

DRUGS (19)
  1. METHOXY POLYETHYLENE GLYCOL-EPOETIN BETA [Suspect]
     Indication: NEPHROGENIC ANAEMIA
     Route: 042
     Dates: start: 20120704, end: 20120905
  2. METHOXY POLYETHYLENE GLYCOL-EPOETIN BETA [Suspect]
     Indication: NEPHROGENIC ANAEMIA
     Route: 042
     Dates: start: 20121010, end: 20121010
  3. METHOXY POLYETHYLENE GLYCOL-EPOETIN BETA [Suspect]
     Indication: NEPHROGENIC ANAEMIA
     Route: 042
     Dates: start: 20121024, end: 20121212
  4. METHOXY POLYETHYLENE GLYCOL-EPOETIN BETA [Suspect]
     Indication: NEPHROGENIC ANAEMIA
     Route: 042
     Dates: start: 20130109, end: 20130130
  5. ARGAMATE [Concomitant]
     Route: 048
     Dates: end: 20121115
  6. ARGAMATE [Concomitant]
     Route: 048
     Dates: start: 20121116, end: 20121212
  7. ARGAMATE [Concomitant]
     Route: 048
     Dates: start: 20121213, end: 20130228
  8. CALBLOCK [Concomitant]
     Route: 048
     Dates: end: 20130304
  9. SODIUM BICARBONATE [Concomitant]
     Route: 048
     Dates: end: 20120106
  10. SODIUM BICARBONATE [Concomitant]
     Route: 048
     Dates: start: 20130107, end: 20130228
  11. SODIUM BICARBONATE [Concomitant]
     Route: 048
     Dates: start: 20130301, end: 20130304
  12. MIYA-BM [Concomitant]
     Route: 048
     Dates: end: 20120905
  13. BAYASPIRIN [Concomitant]
     Route: 048
     Dates: end: 20130228
  14. TAKEPRON [Concomitant]
     Indication: PROPHYLAXIS
     Route: 048
     Dates: end: 20130304
  15. FEBURIC [Concomitant]
     Route: 048
     Dates: start: 20120405, end: 20130228
  16. DOXAZOSIN MESILATE [Concomitant]
     Route: 048
     Dates: start: 20120405, end: 20120502
  17. DOXAZOSIN MESILATE [Concomitant]
     Route: 048
     Dates: start: 20120503, end: 20121212
  18. MICARDIS [Concomitant]
     Route: 048
     Dates: start: 20120503, end: 20130228
  19. WYTENS [Concomitant]
     Route: 048
     Dates: start: 20121213, end: 20130228

REACTIONS (5)
  - Renal failure chronic [Fatal]
  - Pneumonia [Recovered/Resolved]
  - Upper respiratory tract inflammation [Not Recovered/Not Resolved]
  - Bronchitis [Recovered/Resolved]
  - Hypertension [Unknown]
